FAERS Safety Report 16989395 (Version 1)
Quarter: 2019Q4

REPORT INFORMATION
  Report Type: Spontaneous
  Country: DE (occurrence: DE)
  Receive Date: 20191104
  Receipt Date: 20191104
  Transmission Date: 20200122
  Serious: Yes (Hospitalization, Other)
  Sender: FDA-Public Use
  Company Number: DE-GILEAD-2019-0429766

PATIENT
  Age: 45 Year
  Sex: Female
  Weight: 160 kg

DRUGS (6)
  1. COTRIM FORTE [Concomitant]
     Active Substance: SULFAMETHOXAZOLE\TRIMETHOPRIM
  2. FENTANYL TRANSDERMAL SYSTEM [Concomitant]
     Active Substance: FENTANYL
  3. GAVISCON [ALUMINIUM HYDROXIDE;MAGNESIUM CARBONATE] [Concomitant]
  4. CARBOPLATIN;PACLITAXEL [Concomitant]
  5. PANTOPRAZOLE [Concomitant]
     Active Substance: PANTOPRAZOLE
  6. EVIPLERA [Suspect]
     Active Substance: EMTRICITABINE\RILPIVIRINE\TENOFOVIR DISOPROXIL FUMARATE
     Indication: HIV INFECTION
     Dosage: UNK
     Route: 065

REACTIONS (17)
  - Hypothyroidism [Unknown]
  - Metastases to bone [Unknown]
  - Hydronephrosis [Unknown]
  - Nausea [Unknown]
  - Coagulopathy [Unknown]
  - Cervix cancer metastatic [Unknown]
  - Metastases to liver [Not Recovered/Not Resolved]
  - Pancytopenia [Unknown]
  - Hyponatraemia [Unknown]
  - General physical health deterioration [Unknown]
  - Vaginal haemorrhage [Unknown]
  - Metastases to lymph nodes [Not Recovered/Not Resolved]
  - Chills [Unknown]
  - Back pain [Unknown]
  - Dizziness [Unknown]
  - Eating disorder [Unknown]
  - Thrombocytopenia [Unknown]

NARRATIVE: CASE EVENT DATE: 201907
